FAERS Safety Report 17836828 (Version 1)
Quarter: 2020Q2

REPORT INFORMATION
  Report Type: Report from Study
  Country: None (occurrence: AR)
  Receive Date: 20200529
  Receipt Date: 20200529
  Transmission Date: 20200714
  Serious: Yes (Hospitalization, Other)
  Sender: FDA-Public Use
  Company Number: AR-ABBVIE-20K-007-3423331-00

PATIENT
  Sex: Female

DRUGS (1)
  1. HUMIRA [Suspect]
     Active Substance: ADALIMUMAB
     Indication: UVEITIS
     Route: 058
     Dates: start: 20190910

REACTIONS (3)
  - Gastric haemorrhage [Recovering/Resolving]
  - Hepatic steatosis [Not Recovered/Not Resolved]
  - Intervertebral disc protrusion [Unknown]

NARRATIVE: CASE EVENT DATE: 2019
